FAERS Safety Report 10010590 (Version 1)
Quarter: 2014Q1

REPORT INFORMATION
  Report Type: Spontaneous
  Country: US (occurrence: None)
  Receive Date: 20140312
  Receipt Date: 20140312
  Transmission Date: 20141002
  Serious: Yes (Other)
  Sender: FDA-Public Use
  Company Number: None

PATIENT
  Age: 90 Year
  Sex: 0
  Weight: 70 kg

DRUGS (5)
  1. CLONAZEPAM [Suspect]
  2. NUVIGIL [Concomitant]
  3. SINEMET [Concomitant]
  4. PRADAXA [Concomitant]
  5. AMBIEN [Concomitant]

REACTIONS (2)
  - Sleep disorder [None]
  - Abnormal behaviour [None]
